FAERS Safety Report 8862458 (Version 1)
Quarter: 2012Q4

REPORT INFORMATION
  Report Type: 
  Country: US (occurrence: US)
  Receive Date: 20121026
  Receipt Date: 20121026
  Transmission Date: 20130627
  Serious: Yes (Hospitalization, Other)
  Sender: FDA-Public Use
  Company Number: US-ELI_LILLY_AND_COMPANY-US201210005369

PATIENT
  Age: 48 Year
  Sex: Male

DRUGS (2)
  1. ZYPREXA RELPREVV [Suspect]
     Indication: SCHIZOPHRENIA
     Dosage: 150 mg, UNK
     Dates: start: 201202
  2. HALDOL [Concomitant]
     Indication: SCHIZOPHRENIA

REACTIONS (2)
  - Hospitalisation [Unknown]
  - Lethargy [Unknown]
